FAERS Safety Report 7357624-1 (Version None)
Quarter: 2011Q1

REPORT INFORMATION
  Report Type: 
  Country: None (occurrence: None)
  Receive Date: 20110317
  Receipt Date: 20110311
  Transmission Date: 20110831
  Serious: Yes (Death, Hospitalization)
  Sender: FDA-Public Use
  Company Number: FR-SANOFI-AVENTIS-2011SA015131

PATIENT
  Age: 90 Year
  Sex: Female

DRUGS (1)
  1. LOVENOX [Suspect]
     Indication: ATRIAL FIBRILLATION
     Route: 058
     Dates: start: 20110101

REACTIONS (2)
  - OFF LABEL USE [None]
  - PULMONARY EMBOLISM [None]
